FAERS Safety Report 6436878-X (Version None)
Quarter: 2009Q4

REPORT INFORMATION
  Report Type: 
  Country: None (occurrence: None)
  Receive Date: 20091109
  Receipt Date: 20091028
  Transmission Date: 20100525
  Serious: Yes (Life-Threatening, Hospitalization)
  Sender: FDA-Public Use
  Company Number: 2009-02706

PATIENT
  Age: 83 Year
  Sex: Female
  Weight: 67.7 kg

DRUGS (9)
  1. VELCADE [Suspect]
     Indication: DIFFUSE LARGE B-CELL LYMPHOMA
     Dosage: 1.3 MG/M2, INTRAVENOUS
     Route: 042
     Dates: start: 20090626, end: 20090703
  2. RITUXAN [Suspect]
     Indication: DIFFUSE LARGE B-CELL LYMPHOMA
     Dosage: 645 MG, INTRAVENOUS
     Route: 042
     Dates: start: 20090703, end: 20090703
  3. DOXIL [Suspect]
     Indication: DIFFUSE LARGE B-CELL LYMPHOMA
     Dosage: 52 MG, INTRAVENOUS
     Route: 042
  4. OXYCODONE HCL [Concomitant]
  5. ACYCLOVIR [Concomitant]
  6. COLACE (DOCUSATE SODIUM) [Concomitant]
  7. COMPAZINE [Concomitant]
  8. MILK OF MAGNESIA (MAGNESIA HYDROXIDE) [Concomitant]
  9. MULTIVITAMIN ^LAPPE^ (VITAMINS NOS) [Concomitant]

REACTIONS (11)
  - ACUTE MYOCARDIAL INFARCTION [None]
  - BLOOD CHLORIDE DECREASED [None]
  - BLOOD SODIUM DECREASED [None]
  - CARDIAC FAILURE [None]
  - CYTOKINE RELEASE SYNDROME [None]
  - HAEMATOCRIT DECREASED [None]
  - HAEMOGLOBIN DECREASED [None]
  - HYPOTENSION [None]
  - OXYGEN SATURATION DECREASED [None]
  - TACHYCARDIA [None]
  - TROPONIN INCREASED [None]
